FAERS Safety Report 4364091-9 (Version None)
Quarter: 2004Q2

REPORT INFORMATION
  Report Type: 
  Country: None (occurrence: None)
  Receive Date: 20040519
  Receipt Date: 20040510
  Transmission Date: 20050107
  Serious: Yes (Other)
  Sender: FDA-Public Use
  Company Number: ES-JNJFOC-20040306027

PATIENT
  Age: 74 Year
  Sex: Female

DRUGS (8)
  1. REMICADE [Suspect]
     Indication: RHEUMATOID ARTHRITIS
     Dosage: INTRAVENOUS
     Route: 042
     Dates: start: 20010525, end: 20020501
  2. METHOTREXATE [Concomitant]
  3. CORTICOSTEROID (CORTICOSTEROID) [Concomitant]
  4. NONSTEROIDAL ANTI-INFLAMMATORY AGENT (NSAID'S) [Concomitant]
  5. BIPHOSPHONATE (ALL OTHER THERAPEUTIC PRODUCTS) [Concomitant]
  6. DIURETIC (DIURETICS) [Concomitant]
  7. CALCIUM/VITAMIN D (CALCIUM WITH VITAMIN D) [Concomitant]
  8. OMEPRAZOLE [Concomitant]

REACTIONS (1)
  - TUBERCULOSIS [None]
